FAERS Safety Report 10026019 (Version 1)
Quarter: 2014Q1

REPORT INFORMATION
  Report Type: Spontaneous
  Country: GB (occurrence: None)
  Receive Date: 20140318
  Receipt Date: 20140318
  Transmission Date: 20141002
  Serious: Yes (Other)
  Sender: FDA-Public Use
  Company Number: 2014-000701

PATIENT
  Age: 24 Year
  Sex: Female
  Weight: 70 kg

DRUGS (1)
  1. DORYX (DOXYCYCLINE HYCLATE) PROLONGED-RELEASE TABLET, 200MG [Suspect]
     Indication: MALARIA PROPHYLAXIS
     Route: 048
     Dates: start: 20140128, end: 20140214

REACTIONS (2)
  - Gastric ulcer [None]
  - Photosensitivity reaction [None]
